FAERS Safety Report 7506567-9 (Version None)
Quarter: 2011Q2

REPORT INFORMATION
  Report Type: 
  Country: None (occurrence: None)
  Receive Date: 20110526
  Receipt Date: 20110513
  Transmission Date: 20111010
  Serious: No
  Sender: FDA-Public Use
  Company Number: US-CELGENEUS-163-21880-11042174

PATIENT
  Sex: Male

DRUGS (8)
  1. OXYCONTIN [Concomitant]
     Indication: PAIN
     Dosage: 40 MILLIGRAM
     Route: 048
     Dates: start: 20080101
  2. LASIX [Concomitant]
     Route: 065
  3. SPIRONOLACTONE [Concomitant]
     Dosage: 100 MILLIGRAM
     Route: 065
  4. REVLIMID [Suspect]
     Indication: MULTIPLE MYELOMA
     Dosage: 10 MILLIGRAM
     Route: 048
     Dates: start: 20110301
  5. LEVAQUIN [Concomitant]
     Dosage: 500 MILLIGRAM
     Route: 065
  6. OXYCODONE HCL [Concomitant]
     Dosage: 40 MILLIGRAM
     Route: 065
  7. PRILOSEC [Concomitant]
     Dosage: 30 MILLIGRAM
     Route: 048
     Dates: start: 20070101
  8. LYRICA [Concomitant]
     Dosage: 50 MILLIGRAM
     Route: 065
     Dates: start: 20090101

REACTIONS (3)
  - PRURITUS [None]
  - RASH [None]
  - FLUID RETENTION [None]
